FAERS Safety Report 15994120 (Version 1)
Quarter: 2019Q1

REPORT INFORMATION
  Report Type: Spontaneous
  Country: IN (occurrence: IN)
  Receive Date: 20190222
  Receipt Date: 20190222
  Transmission Date: 20190418
  Serious: Yes (Hospitalization, Disabling, Other)
  Sender: FDA-Public Use
  Company Number: IN-STRIDES ARCOLAB LIMITED-2019SP001582

PATIENT
  Sex: Female

DRUGS (3)
  1. PENTAZOCINE [Suspect]
     Active Substance: PENTAZOCINE
     Indication: ANAESTHESIA
     Dosage: 30 MG, UNKNOWN
     Route: 013
  2. ATROPINE. [Suspect]
     Active Substance: ATROPINE
     Indication: ANAESTHESIA
     Dosage: 0.4 MG, UNKNOWN
     Route: 013
  3. PROMETHAZINE HYDROCHLORIDE. [Suspect]
     Active Substance: PROMETHAZINE HYDROCHLORIDE
     Indication: ANAESTHESIA
     Dosage: 25 MG, UNKNOWN
     Route: 013

REACTIONS (10)
  - Gangrene [Unknown]
  - Pain in extremity [Unknown]
  - Radial pulse abnormal [Unknown]
  - Hypoperfusion [Unknown]
  - Peripheral swelling [Unknown]
  - Incorrect route of product administration [Unknown]
  - Sensory loss [Unknown]
  - Muscle contracture [Unknown]
  - Pyrexia [Unknown]
  - Skin discolouration [Unknown]

NARRATIVE: CASE EVENT DATE: 201801
